FAERS Safety Report 5266848-9 (Version None)
Quarter: 2007Q1

REPORT INFORMATION
  Report Type: 
  Country: None (occurrence: None)
  Receive Date: 20061213
  Receipt Date: 20020516
  Transmission Date: 20070707
  Serious: Yes (Hospitalization)
  Sender: FDA-Public Use
  Company Number: 2002UW07082

PATIENT
  Age: 62 Year
  Sex: Female
  Weight: 73.0291 kg

DRUGS (13)
  1. NOLVADEX [Suspect]
     Indication: BREAST CANCER
     Dosage: 20 MG QD PO
     Route: 048
     Dates: start: 19970429
  2. PROZAC [Concomitant]
  3. CARDIZEM [Concomitant]
  4. THEO-DUR [Concomitant]
  5. COUMADIN [Concomitant]
  6. SINGULAIR ^DIECKMANN^ [Concomitant]
  7. MIACALCIN [Concomitant]
  8. TAMBOCOR [Concomitant]
  9. ATROVENT [Concomitant]
  10. PROVENTIL INHALER [Concomitant]
  11. SYNTHROID [Concomitant]
  12. VITAMIN A [Concomitant]
  13. ACCOLATE [Concomitant]

REACTIONS (1)
  - POSTMENOPAUSAL HAEMORRHAGE [None]
